FAERS Safety Report 23393784 (Version 1)
Quarter: 2024Q1

REPORT INFORMATION
  Report Type: Spontaneous
  Country: US (occurrence: US)
  Receive Date: 20240111
  Receipt Date: 20240111
  Transmission Date: 20240410
  Serious: Yes (Other)
  Sender: FDA-Public Use
  Company Number: US-REGENERON PHARMACEUTICALS, INC.-2023-145041

PATIENT
  Sex: Female

DRUGS (1)
  1. EYLEA [Suspect]
     Active Substance: AFLIBERCEPT
     Indication: Neovascular age-related macular degeneration
     Dosage: UNK, Q8W INTO RIGHT EYE, FORMULATION: UNKNOWN

REACTIONS (4)
  - Cataract [Unknown]
  - Visual acuity reduced [Recovering/Resolving]
  - Hypotension [Unknown]
  - Vitreous floaters [Recovered/Resolved]
